FAERS Safety Report 19151934 (Version 1)
Quarter: 2021Q2

REPORT INFORMATION
  Report Type: Spontaneous
  Country: IN (occurrence: IN)
  Receive Date: 20210419
  Receipt Date: 20210419
  Transmission Date: 20210717
  Serious: Yes (Hospitalization)
  Sender: FDA-Public Use
  Company Number: IN-PURACAP-IN-2021EPCLIT00420

PATIENT
  Age: 58 Year
  Sex: Male

DRUGS (5)
  1. CALCIPOTRIOL [Interacting]
     Active Substance: CALCIPOTRIENE
     Indication: PSORIASIS
     Route: 065
  2. PREDNISOLONE. [Interacting]
     Active Substance: PREDNISOLONE
     Indication: PSORIASIS
     Route: 042
  3. CYCLOSPORINE. [Interacting]
     Active Substance: CYCLOSPORINE
     Indication: PSORIASIS
     Route: 065
  4. NAPROXEN SODIUM. [Suspect]
     Active Substance: NAPROXEN SODIUM
     Indication: SPINAL PAIN
     Route: 065
  5. TRIAMCINOLONE [Interacting]
     Active Substance: TRIAMCINOLONE
     Indication: PSORIASIS
     Route: 061

REACTIONS (1)
  - Psoriasis [Recovering/Resolving]
